FAERS Safety Report 23264607 (Version 2)
Quarter: 2024Q1

REPORT INFORMATION
  Report Type: Report from Study
  Country: US (occurrence: US)
  Receive Date: 20231205
  Receipt Date: 20240210
  Transmission Date: 20240410
  Serious: Yes (Hospitalization, Other)
  Sender: FDA-Public Use
  Company Number: US-ABBVIE-5394062

PATIENT
  Sex: Male

DRUGS (1)
  1. IMBRUVICA [Suspect]
     Active Substance: IBRUTINIB
     Indication: Lymphoma
     Route: 048
     Dates: start: 202303

REACTIONS (8)
  - Hospitalisation [Unknown]
  - Depressed mood [Unknown]
  - Unevaluable event [Unknown]
  - Hypotension [Unknown]
  - Hospitalisation [Unknown]
  - Blood potassium increased [Unknown]
  - Urinary bladder haemorrhage [Unknown]
  - Emotional disorder [Unknown]

NARRATIVE: CASE EVENT DATE: 20230101
